FAERS Safety Report 23045307 (Version 1)
Quarter: 2023Q4

REPORT INFORMATION
  Report Type: Spontaneous
  Country: GB (occurrence: GB)
  Receive Date: 20231009
  Receipt Date: 20231009
  Transmission Date: 20240110
  Serious: Yes (Hospitalization, Other)
  Sender: FDA-Public Use
  Company Number: GB-MHRA-MED-202309192106015970-QRDNG

PATIENT

DRUGS (5)
  1. IBUPROFEN [Suspect]
     Active Substance: IBUPROFEN
     Indication: Adverse drug reaction
     Dosage: UNK
  2. IBUPROFEN [Suspect]
     Active Substance: IBUPROFEN
     Indication: Gout
  3. NAPROXEN [Suspect]
     Active Substance: NAPROXEN
     Indication: Product used for unknown indication
     Dosage: 500 MG, (500MG TABLETS ONE TWICE DAILY AS REQUIRED FOR SHORT COURSES)
  4. ALLOPURINOL [Concomitant]
     Active Substance: ALLOPURINOL
     Indication: Adverse drug reaction
     Dosage: UNK
  5. ALLOPURINOL [Concomitant]
     Active Substance: ALLOPURINOL
     Indication: Prophylaxis

REACTIONS (2)
  - Gastrointestinal haemorrhage [Recovering/Resolving]
  - Medication error [Unknown]

NARRATIVE: CASE EVENT DATE: 20230912
